FAERS Safety Report 8370536-X (Version None)
Quarter: 2012Q2

REPORT INFORMATION
  Report Type: 
  Country: None (occurrence: None)
  Receive Date: 20120518
  Receipt Date: 20120515
  Transmission Date: 20120825
  Serious: Yes (Death)
  Sender: FDA-Public Use
  Company Number: ES-B.I. PHARMACEUTICALS,INC./RIDGEFIELD-2012-ES-00205ES

PATIENT
  Sex: Female
  Weight: 57 kg

DRUGS (7)
  1. PRILOSEC [Concomitant]
     Indication: PROPHYLAXIS AGAINST GASTROINTESTINAL ULCER
     Dosage: 20 MG
     Route: 048
     Dates: start: 20101201, end: 20120406
  2. BISOPROLOL FUMARATE [Concomitant]
     Indication: HYPERTENSION
     Dosage: 10 MG
     Route: 048
     Dates: start: 20111101, end: 20120406
  3. NITROGLYCERIN [Concomitant]
     Dosage: 10 MG
     Route: 062
     Dates: end: 20120406
  4. FERROUS SULFATE TAB [Concomitant]
     Indication: ANAEMIA
     Dosage: 105 MG
     Route: 048
     Dates: start: 20110801, end: 20120406
  5. ERITROPOYETINA (EPREX) [Concomitant]
     Indication: REFRACTORY ANAEMIA
     Dosage: 857.1429 U
  6. PRADAXA [Suspect]
     Indication: ATRIAL FIBRILLATION
     Dosage: 220 MG
     Route: 048
     Dates: start: 20110624, end: 20120406
  7. ALLOPURINOL [Concomitant]
     Indication: HYPERURICAEMIA
     Dosage: 300 MG
     Route: 048
     Dates: start: 20111101, end: 20120406

REACTIONS (3)
  - BRAIN OEDEMA [None]
  - HYPERTENSION [None]
  - CEREBRAL HAEMORRHAGE [None]
